FAERS Safety Report 9846738 (Version 2)
Quarter: 2014Q1

REPORT INFORMATION
  Report Type: Spontaneous
  Country: US (occurrence: US)
  Receive Date: 20140127
  Receipt Date: 20140127
  Transmission Date: 20141002
  Serious: Yes (Hospitalization, Other)
  Sender: FDA-Public Use
  Company Number: US-GILEAD-2011-0047966

PATIENT
  Sex: Female

DRUGS (9)
  1. COMPLERA [Suspect]
     Indication: PRODUCT USED FOR UNKNOWN INDICATION
  2. SYNTHROID [Concomitant]
  3. ABILIFY [Concomitant]
  4. CLONAZEPAM [Concomitant]
  5. PROZAC [Concomitant]
  6. FLONASE [Concomitant]
  7. CLARITIN                           /00413701/ [Concomitant]
  8. COLACE [Concomitant]
  9. MULTIVITAMIN                       /00097801/ [Concomitant]

REACTIONS (2)
  - Suicidal ideation [Recovered/Resolved]
  - Hyperthyroidism [Unknown]
